FAERS Safety Report 17982526 (Version 1)
Quarter: 2020Q3

REPORT INFORMATION
  Report Type: Spontaneous
  Country: US (occurrence: US)
  Receive Date: 20200702
  Receipt Date: 20200702
  Transmission Date: 20201103
  Serious: No
  Sender: FDA-Public Use
  Company Number: None

PATIENT
  Sex: Female
  Weight: 56.25 kg

DRUGS (6)
  1. MULTIVITAMIN [Concomitant]
     Active Substance: VITAMINS
  2. BUSPIRONE [Suspect]
     Active Substance: BUSPIRONE HYDROCHLORIDE
     Indication: PANIC DISORDER
     Dosage: ?          QUANTITY:1 TABLET(S);?
     Route: 048
  3. ZYRTEC [Concomitant]
     Active Substance: CETIRIZINE HYDROCHLORIDE
  4. COPPER IUD [Concomitant]
     Active Substance: COPPER
  5. BUSPIRONE [Suspect]
     Active Substance: BUSPIRONE HYDROCHLORIDE
     Indication: GENERALISED ANXIETY DISORDER
     Dosage: ?          QUANTITY:1 TABLET(S);?
     Route: 048
  6. FISH OIL [Concomitant]
     Active Substance: FISH OIL

REACTIONS (1)
  - Restless legs syndrome [None]
